FAERS Safety Report 19097775 (Version 1)
Quarter: 2021Q2

REPORT INFORMATION
  Report Type: Spontaneous
  Country: MA (occurrence: MA)
  Receive Date: 20210406
  Receipt Date: 20210406
  Transmission Date: 20210717
  Serious: Yes (Life-Threatening, Other)
  Sender: FDA-Public Use
  Company Number: MA-ACCORD-221173

PATIENT
  Age: 62 Year
  Sex: Female

DRUGS (3)
  1. HYDROXYCHLOROQUINE [Suspect]
     Active Substance: HYDROXYCHLOROQUINE
     Indication: SYSTEMIC LUPUS ERYTHEMATOSUS
  2. CHLOROQUINE. [Suspect]
     Active Substance: CHLOROQUINE
     Indication: SYSTEMIC LUPUS ERYTHEMATOSUS
  3. CHLOROQUINE. [Suspect]
     Active Substance: CHLOROQUINE
     Indication: SJOGREN^S SYNDROME

REACTIONS (2)
  - Atrioventricular block complete [Unknown]
  - Cardiotoxicity [Unknown]
